FAERS Safety Report 7668746-X (Version None)
Quarter: 2011Q3

REPORT INFORMATION
  Report Type: 
  Country: None (occurrence: None)
  Receive Date: 20110808
  Receipt Date: 20110804
  Transmission Date: 20111222
  Serious: Yes (Hospitalization, Other)
  Sender: FDA-Public Use
  Company Number: BR-ABBOTT-10P-020-0630200-00

PATIENT
  Sex: Male
  Weight: 75 kg

DRUGS (4)
  1. PREDNISONE / METHOTREXATE [Concomitant]
     Indication: PAIN
     Route: 048
  2. MELOXICAM [Concomitant]
     Indication: PAIN
     Route: 048
  3. HUMIRA [Suspect]
     Indication: ANKYLOSING SPONDYLITIS
     Route: 058
     Dates: end: 20090801
  4. HUMIRA [Suspect]
     Route: 058
     Dates: start: 20091001

REACTIONS (11)
  - NEPHROLITHIASIS [None]
  - DUODENAL PERFORATION [None]
  - DIVERTICULAR PERFORATION [None]
  - INFECTION [None]
  - PAIN [None]
  - FLATULENCE [None]
  - ABDOMINAL INFECTION [None]
  - ULCER [None]
  - SYMPTOM MASKED [None]
  - DUODENAL ULCER [None]
  - ABDOMINAL PAIN [None]
